FAERS Safety Report 6128432-4 (Version None)
Quarter: 2009Q1

REPORT INFORMATION
  Report Type: 
  Country: None (occurrence: None)
  Receive Date: 20090323
  Receipt Date: 20090311
  Transmission Date: 20090719
  Serious: Yes (Hospitalization, Other)
  Sender: FDA-Public Use
  Company Number: M034484

PATIENT
  Age: 54 Year
  Sex: Female

DRUGS (1)
  1. TAXOL [Suspect]
     Indication: OVARIAN EPITHELIAL CANCER
     Route: 042

REACTIONS (3)
  - FISTULA [None]
  - INTESTINAL PERFORATION [None]
  - NEUTROPENIA [None]
